FAERS Safety Report 6670811-0 (Version None)
Quarter: 2010Q2

REPORT INFORMATION
  Report Type: 
  Country: None (occurrence: None)
  Receive Date: 20100407
  Receipt Date: 20100325
  Transmission Date: 20101027
  Serious: Yes (Hospitalization)
  Sender: FDA-Public Use
  Company Number: NL-MEDIMMUNE-MEDI-0010925

PATIENT
  Sex: Female
  Weight: 8 kg

DRUGS (2)
  1. SYNAGIS [Suspect]
     Route: 030
     Dates: start: 20091007, end: 20100224
  2. SYNAGIS [Suspect]
     Route: 030
     Dates: start: 20100325, end: 20100325

REACTIONS (2)
  - PAIN [None]
  - SURGERY [None]
